FAERS Safety Report 12275857 (Version 1)
Quarter: 2016Q2

REPORT INFORMATION
  Report Type: Spontaneous
  Country: US (occurrence: US)
  Receive Date: 20160418
  Receipt Date: 20160418
  Transmission Date: 20160815
  Serious: Yes (Other)
  Sender: FDA-Public Use
  Company Number: US-BEH-2016061178

PATIENT
  Sex: Male
  Weight: 64 kg

DRUGS (17)
  1. ACETAMINOPHEN. [Concomitant]
     Active Substance: ACETAMINOPHEN
  2. DULCOLAX EC [Concomitant]
  3. ZONISAMIDE. [Concomitant]
     Active Substance: ZONISAMIDE
  4. BIAXIN [Concomitant]
     Active Substance: CLARITHROMYCIN
  5. ALAWAY [Concomitant]
     Active Substance: KETOTIFEN FUMARATE
  6. BACTRIM DS [Concomitant]
     Active Substance: SULFAMETHOXAZOLE\TRIMETHOPRIM
  7. HIZENTRA [Suspect]
     Active Substance: HUMAN IMMUNOGLOBULIN G
     Indication: HYPOGAMMAGLOBULINAEMIA
     Route: 058
     Dates: start: 20110211
  8. PROVENTIL [Concomitant]
     Active Substance: ALBUTEROL
  9. DIPHENHYDRAMINE. [Concomitant]
     Active Substance: DIPHENHYDRAMINE
  10. EPIPEN [Concomitant]
     Active Substance: EPINEPHRINE
  11. SENOKOT [Concomitant]
     Active Substance: SENNOSIDES
  12. PREDNISONE. [Concomitant]
     Active Substance: PREDNISONE
  13. SEROQUEL [Concomitant]
     Active Substance: QUETIAPINE FUMARATE
  14. ALBUTEROL. [Concomitant]
     Active Substance: ALBUTEROL
  15. LIDOCAINE / PRILOCAINE [Concomitant]
  16. LMX [Concomitant]
     Active Substance: LIDOCAINE
  17. MIRALAX [Concomitant]
     Active Substance: POLYETHYLENE GLYCOL 3350

REACTIONS (1)
  - Pneumonia streptococcal [Unknown]
